FAERS Safety Report 9216266 (Version 2)
Quarter: 2013Q2

REPORT INFORMATION
  Report Type: Spontaneous
  Country: US (occurrence: US)
  Receive Date: 20130408
  Receipt Date: 20130426
  Transmission Date: 20140414
  Serious: Yes (Hospitalization)
  Sender: FDA-Public Use
  Company Number: US-BAYER-2013-041434

PATIENT
  Age: 23 Year
  Sex: Female
  Weight: 54.42 kg

DRUGS (2)
  1. YAZ [Suspect]
     Indication: CONTRACEPTION
  2. IBUPROFEN [Concomitant]
     Dosage: 600 MG, TID
     Dates: start: 20091115

REACTIONS (1)
  - Pulmonary embolism [None]
